FAERS Safety Report 19221831 (Version 1)
Quarter: 2021Q2

REPORT INFORMATION
  Report Type: Spontaneous
  Country: EG (occurrence: EG)
  Receive Date: 20210506
  Receipt Date: 20210506
  Transmission Date: 20210717
  Serious: Yes (Life-Threatening, Hospitalization, Other)
  Sender: FDA-Public Use
  Company Number: EG-LUPIN PHARMACEUTICALS INC.-2021-06185

PATIENT
  Age: 39 Year
  Sex: Female

DRUGS (2)
  1. CYTOTEC [Concomitant]
     Active Substance: MISOPROSTOL
     Indication: UTERINE ATONY
     Dosage: 800 MILLIGRAM
     Route: 054
  2. METHYLERGONOVINE [Suspect]
     Active Substance: METHYLERGONOVINE
     Indication: UTERINE ATONY
     Dosage: 0.2 MILLIGRAM
     Route: 030

REACTIONS (2)
  - Arteriospasm coronary [Recovered/Resolved]
  - Cardiac arrest [Recovered/Resolved]
